FAERS Safety Report 10399841 (Version 2)
Quarter: 2014Q3

REPORT INFORMATION
  Report Type: Spontaneous
  Country: US (occurrence: US)
  Receive Date: 20140821
  Receipt Date: 20140821
  Transmission Date: 20150326
  Serious: Yes (Hospitalization)
  Sender: FDA-Public Use
  Company Number: US-GLAXOSMITHKLINE-A0886952A

PATIENT
  Sex: Male

DRUGS (1)
  1. AVANDIA [Suspect]
     Active Substance: ROSIGLITAZONE MALEATE
     Indication: DIABETES MELLITUS
     Dosage: 4MG TWICE PER DAY
     Dates: start: 2006, end: 2007

REACTIONS (6)
  - Cardiac failure congestive [Unknown]
  - Nephropathy [Unknown]
  - Ureteral disorder [Unknown]
  - Myocardial infarction [Not Recovered/Not Resolved]
  - Renal failure acute [Unknown]
  - Arteriosclerosis coronary artery [Unknown]
